FAERS Safety Report 8805925 (Version 1)
Quarter: 2012Q4

REPORT INFORMATION
  Report Type: Spontaneous
  Country: US (occurrence: None)
  Receive Date: 20120919
  Receipt Date: 20120919
  Transmission Date: 20130627
  Serious: Yes (Other)
  Sender: FDA-Public Use
  Company Number: None

PATIENT
  Age: 51 Year
  Sex: Female
  Weight: 113.4 kg

DRUGS (1)
  1. PANTOPRAZOLE [Suspect]
     Route: 048
     Dates: start: 20120901, end: 20120914

REACTIONS (10)
  - Chest discomfort [None]
  - Productive cough [None]
  - Malaise [None]
  - Dyspnoea [None]
  - Abdominal distension [None]
  - Back pain [None]
  - Musculoskeletal pain [None]
  - BACK,SHOULDER AND ARM PAIN [None]
  - Pain in extremity [None]
  - Hypersensitivity [None]
